FAERS Safety Report 19667098 (Version 1)
Quarter: 2021Q3

REPORT INFORMATION
  Report Type: Spontaneous
  Country: US (occurrence: US)
  Receive Date: 20210806
  Receipt Date: 20210806
  Transmission Date: 20211014
  Serious: No
  Sender: FDA-Public Use
  Company Number: US-ACCORD-220456

PATIENT

DRUGS (3)
  1. DOCETAXEL ACCORD [Suspect]
     Active Substance: DOCETAXEL
     Indication: BREAST CANCER
     Dates: start: 20181009, end: 20181218
  2. NEULASTA [Suspect]
     Active Substance: PEGFILGRASTIM
     Indication: BREAST CANCER
  3. CYTOXAN [Suspect]
     Active Substance: CYCLOPHOSPHAMIDE
     Indication: BREAST CANCER
     Dosage: 4 CYCLES

REACTIONS (1)
  - Dacryostenosis acquired [Unknown]
